FAERS Safety Report 6955460-9 (Version None)
Quarter: 2010Q3

REPORT INFORMATION
  Report Type: 
  Country: None (occurrence: None)
  Receive Date: 20100830
  Receipt Date: 20100818
  Transmission Date: 20110219
  Serious: Yes (Other)
  Sender: FDA-Public Use
  Company Number: DE-PFIZER INC-2010103837

PATIENT
  Age: 65 Year
  Sex: Female

DRUGS (2)
  1. LYRICA [Suspect]
     Dosage: 100 MG/DAY
  2. AMITRIPTYLINE [Concomitant]
     Dosage: 60 MG, UNK

REACTIONS (1)
  - HYPERTENSIVE CRISIS [None]
